FAERS Safety Report 8329475-2 (Version None)
Quarter: 2012Q2

REPORT INFORMATION
  Report Type: 
  Country: None (occurrence: None)
  Receive Date: 20120502
  Receipt Date: 20120418
  Transmission Date: 20120825
  Serious: Yes (Other)
  Sender: FDA-Public Use
  Company Number: CN-JNJFOC-20120500414

PATIENT
  Sex: Male
  Weight: 62 kg

DRUGS (2)
  1. MICONAZOLE NITRATE [Suspect]
     Route: 061
  2. MICONAZOLE NITRATE [Suspect]
     Indication: BACTERIAL INFECTION
     Route: 061
     Dates: start: 20110703, end: 20110703

REACTIONS (1)
  - ANAPHYLACTOID REACTION [None]
